FAERS Safety Report 13746881 (Version 1)
Quarter: 2017Q3

REPORT INFORMATION
  Report Type: Report from Study
  Country: US (occurrence: US)
  Receive Date: 20170712
  Receipt Date: 20170712
  Transmission Date: 20171127
  Serious: Yes (Hospitalization)
  Sender: FDA-Public Use
  Company Number: US-ALLERGAN-1724069US

PATIENT
  Age: 72 Year

DRUGS (2)
  1. MEMANTINE HCL 10MG TAB (TBD) [Suspect]
     Active Substance: MEMANTINE
     Indication: DEMENTIA
  2. MEMANTINE HCL 10MG TAB (TBD) [Suspect]
     Active Substance: MEMANTINE
     Indication: DEMENTIA ALZHEIMER^S TYPE
     Route: 065

REACTIONS (1)
  - Adverse event [Unknown]
